FAERS Safety Report 11469952 (Version 2)
Quarter: 2015Q3

REPORT INFORMATION
  Report Type: Spontaneous
  Country: US (occurrence: US)
  Receive Date: 20150903
  Receipt Date: 20150903
  Transmission Date: 20151125
  Serious: No
  Sender: FDA-Public Use
  Company Number: US-ELI_LILLY_AND_COMPANY-US201109006846

PATIENT
  Sex: Male

DRUGS (7)
  1. VITAMIN C [Concomitant]
     Active Substance: ASCORBIC ACID
  2. CYMBALTA [Suspect]
     Active Substance: DULOXETINE HYDROCHLORIDE
     Indication: DEPRESSION
     Dosage: 60 MG, QD
     Dates: start: 2010, end: 201108
  3. VITAMIN D [Concomitant]
     Active Substance: CHOLECALCIFEROL
  4. VITAMIN E                            /001105/ [Concomitant]
  5. VITAMIN A [Concomitant]
     Active Substance: VITAMIN A
  6. FISH OIL [Concomitant]
     Active Substance: FISH OIL
  7. LECITHIN [Concomitant]
     Active Substance: LECITHIN

REACTIONS (15)
  - Haematuria [Recovering/Resolving]
  - Tremor [Recovering/Resolving]
  - Mood swings [Recovered/Resolved]
  - Tinnitus [Recovered/Resolved]
  - Weight decreased [Unknown]
  - Myalgia [Recovering/Resolving]
  - Emotional disorder [Recovering/Resolving]
  - Drug withdrawal syndrome [Recovering/Resolving]
  - Anger [Recovering/Resolving]
  - Feeling cold [Recovering/Resolving]
  - Pyrexia [Recovered/Resolved]
  - Chills [Recovered/Resolved]
  - Malaise [Recovering/Resolving]
  - Hyperhidrosis [Recovered/Resolved]
  - Mental fatigue [Recovering/Resolving]
